FAERS Safety Report 4977289-3 (Version None)
Quarter: 2006Q2

REPORT INFORMATION
  Report Type: 
  Country: None (occurrence: None)
  Receive Date: 20060419
  Receipt Date: 20050927
  Transmission Date: 20061013
  Serious: Yes (Hospitalization)
  Sender: FDA-Public Use
  Company Number: US-MERCK-0509USA04034

PATIENT
  Age: 72 Year
  Sex: Male
  Weight: 78 kg

DRUGS (3)
  1. VIOXX [Suspect]
     Indication: RHEUMATOID ARTHRITIS
     Route: 048
     Dates: start: 20000101, end: 20040930
  2. ALLOPURINOL [Concomitant]
     Route: 065
  3. METOPROLOL [Concomitant]
     Route: 065

REACTIONS (6)
  - CARDIAC DISORDER [None]
  - HEART INJURY [None]
  - POLYTRAUMATISM [None]
  - RENAL DISORDER [None]
  - RENAL FAILURE [None]
  - RENAL INJURY [None]
